FAERS Safety Report 8255380-6 (Version None)
Quarter: 2012Q1

REPORT INFORMATION
  Report Type: 
  Country: None (occurrence: None)
  Receive Date: 20120329
  Receipt Date: 20120317
  Transmission Date: 20120608
  Serious: Yes (Hospitalization)
  Sender: FDA-Public Use
  Company Number: 2012AP000373

PATIENT
  Age: 25 Year
  Sex: Female

DRUGS (1)
  1. CARBAMAZEPINE [Suspect]
     Indication: PRODUCT USED FOR UNKNOWN INDICATION

REACTIONS (9)
  - THROMBOCYTOSIS [None]
  - TRANSAMINASES INCREASED [None]
  - FIBROSIS [None]
  - ANAEMIA [None]
  - LYMPHOPENIA [None]
  - TOXIC EPIDERMAL NECROLYSIS [None]
  - SYMBLEPHARON [None]
  - STEVENS-JOHNSON SYNDROME [None]
  - HAEMOLYTIC ANAEMIA [None]
